FAERS Safety Report 8812222 (Version 2)
Quarter: 2015Q1

REPORT INFORMATION
  Report Type: Report from Study
  Country: US (occurrence: US)
  Receive Date: 20120927
  Receipt Date: 20150320
  Transmission Date: 20150721
  Serious: Yes (Death, Other)
  Sender: FDA-Public Use
  Company Number: US-ROCHE-1124730

PATIENT
  Age: 52 Year
  Sex: Female
  Weight: 65 kg

DRUGS (15)
  1. DECADRON [Concomitant]
     Active Substance: DEXAMETHASONE
     Route: 042
  2. KYTRIL [Concomitant]
     Active Substance: GRANISETRON HYDROCHLORIDE
     Route: 048
  3. NEULASTA [Concomitant]
     Active Substance: PEGFILGRASTIM
     Route: 058
  4. ALOXI [Concomitant]
     Active Substance: PALONOSETRON HYDROCHLORIDE
     Route: 065
  5. ZOMETA [Concomitant]
     Active Substance: ZOLEDRONIC ACID
     Route: 042
  6. GEMZAR [Concomitant]
     Active Substance: GEMCITABINE HYDROCHLORIDE
     Route: 042
  7. REGLAN [Concomitant]
     Active Substance: METOCLOPRAMIDE HYDROCHLORIDE
  8. XELODA [Suspect]
     Active Substance: CAPECITABINE
     Indication: BREAST CANCER FEMALE
     Route: 048
     Dates: start: 20070202, end: 200705
  9. DECADRON [Concomitant]
     Active Substance: DEXAMETHASONE
     Route: 042
  10. ATIVAN [Concomitant]
     Active Substance: LORAZEPAM
     Route: 042
  11. IBUPROFEN. [Concomitant]
     Active Substance: IBUPROFEN
  12. AVASTIN [Suspect]
     Active Substance: BEVACIZUMAB
     Indication: BREAST CANCER FEMALE
     Route: 042
     Dates: start: 20070202
  13. CARBOPLATIN. [Concomitant]
     Active Substance: CARBOPLATIN
     Route: 042
  14. TAXOTERE [Concomitant]
     Active Substance: DOCETAXEL
     Route: 042
  15. ANZEMET [Concomitant]
     Active Substance: DOLASETRON MESYLATE
     Route: 048

REACTIONS (21)
  - Vomiting [Unknown]
  - Anaemia [Unknown]
  - Nausea [Unknown]
  - Bone pain [Unknown]
  - Hand-foot-and-mouth disease [Unknown]
  - Vision blurred [Unknown]
  - Haemorrhoids [Unknown]
  - Abdominal discomfort [Unknown]
  - Implant site dehiscence [Unknown]
  - Death [Fatal]
  - Neuropathy peripheral [Recovered/Resolved]
  - Impaired healing [Recovering/Resolving]
  - Abdominal pain [Unknown]
  - Gastrointestinal haemorrhage [Unknown]
  - Disease progression [Unknown]
  - Dyspnoea [Unknown]
  - Pain [Unknown]
  - Fatigue [Unknown]
  - Asthenia [Unknown]
  - Urinary tract infection [Unknown]
  - Ulcer [Unknown]

NARRATIVE: CASE EVENT DATE: 20081203
